FAERS Safety Report 16639228 (Version 1)
Quarter: 2019Q3

REPORT INFORMATION
  Report Type: Spontaneous
  Country: US (occurrence: US)
  Receive Date: 20190726
  Receipt Date: 20190726
  Transmission Date: 20191004
  Serious: Yes (Other)
  Sender: FDA-Public Use
  Company Number: US-009507513-1907USA012162

PATIENT
  Sex: Female

DRUGS (4)
  1. ACTONEL [Suspect]
     Active Substance: RISEDRONATE SODIUM
     Dosage: UNK
     Dates: start: 2006, end: 2011
  2. FOSAMAX [Suspect]
     Active Substance: ALENDRONATE SODIUM
     Dosage: ONCE WEEKLY
     Route: 048
     Dates: start: 201907
  3. FOSAMAX [Suspect]
     Active Substance: ALENDRONATE SODIUM
     Dosage: ONCE WEEKLY
     Route: 048
     Dates: start: 2006, end: 2011
  4. PREDNISONE. [Concomitant]
     Active Substance: PREDNISONE

REACTIONS (8)
  - Limb injury [Unknown]
  - Feeling abnormal [Unknown]
  - Acute motor-sensory axonal neuropathy [Unknown]
  - Muscle atrophy [Unknown]
  - Immune system disorder [Unknown]
  - Fear of disease [Unknown]
  - Spinal operation [Unknown]
  - Product packaging difficult to open [Unknown]

NARRATIVE: CASE EVENT DATE: 201701
